FAERS Safety Report 14244853 (Version 1)
Quarter: 2017Q4

REPORT INFORMATION
  Report Type: Spontaneous
  Country: US (occurrence: US)
  Receive Date: 20171201
  Receipt Date: 20171201
  Transmission Date: 20180321
  Serious: No
  Sender: FDA-Public Use
  Company Number: US-ACTELION-A-US2017-161380

PATIENT
  Age: 59 Year
  Sex: Female

DRUGS (11)
  1. ALPHAGAN P [Concomitant]
     Active Substance: BRIMONIDINE TARTRATE
  2. AMLODIPINE [Concomitant]
     Active Substance: AMLODIPINE BESYLATE
  3. ANORO ELLIPTA [Concomitant]
     Active Substance: UMECLIDINIUM BROMIDE\VILANTEROL TRIFENATATE
  4. CELECOXIB. [Concomitant]
     Active Substance: CELECOXIB
  5. METHOTREXATE. [Concomitant]
     Active Substance: METHOTREXATE
  6. ALPRAZOLAM. [Concomitant]
     Active Substance: ALPRAZOLAM
  7. HYDROCHLOROTHIAZIDE W/METOPROLOL [Concomitant]
     Active Substance: HYDROCHLOROTHIAZIDE\METOPROLOL
  8. CLOBETASOL PROPRIONATE [Concomitant]
     Active Substance: CLOBETASOL PROPIONATE
  9. NIFEDIPINE. [Concomitant]
     Active Substance: NIFEDIPINE
  10. PANTOPRAZOLE [Concomitant]
     Active Substance: PANTOPRAZOLE
  11. OPSUMIT [Suspect]
     Active Substance: MACITENTAN
     Indication: PULMONARY ARTERIAL HYPERTENSION
     Dosage: 10 MG, QD
     Route: 048
     Dates: start: 20170526

REACTIONS (2)
  - Urinary tract infection [Not Recovered/Not Resolved]
  - Nausea [Unknown]

NARRATIVE: CASE EVENT DATE: 201705
